FAERS Safety Report 4988422-1 (Version None)
Quarter: 2006Q2

REPORT INFORMATION
  Report Type: 
  Country: None (occurrence: None)
  Receive Date: 20060502
  Receipt Date: 20060413
  Transmission Date: 20061013
  Serious: Yes (Hospitalization)
  Sender: FDA-Public Use
  Company Number: IE-BRISTOL-MYERS SQUIBB COMPANY-13350699

PATIENT
  Age: 56 Year
  Sex: Female

DRUGS (3)
  1. ERBITUX [Suspect]
     Indication: NON-SMALL CELL LUNG CANCER
     Dosage: MOST RECENT INFUSION 06-APR-06 (14TH INFUSION).
     Route: 041
     Dates: start: 20060105
  2. CISPLATIN [Suspect]
     Indication: NON-SMALL CELL LUNG CANCER
     Dosage: MOST RECENT INFUSION 30-MAR-06 (4TH INFUSION).
     Route: 042
     Dates: start: 20060105
  3. VINORELBINE [Suspect]
     Indication: NON-SMALL CELL LUNG CANCER
     Dosage: MOST RECENT INFUSION 06-APR-06 (8TH INFUSION).
     Route: 042
     Dates: start: 20060105

REACTIONS (2)
  - LOWER RESPIRATORY TRACT INFECTION [None]
  - NEUTROPENIA [None]
